FAERS Safety Report 5042628-4 (Version None)
Quarter: 2006Q2

REPORT INFORMATION
  Report Type: 
  Country: None (occurrence: None)
  Receive Date: 20060627
  Receipt Date: 20060602
  Transmission Date: 20061013
  Serious: Yes (Other)
  Sender: FDA-Public Use
  Company Number: 8009681

PATIENT
  Age: 34 Year
  Sex: Female

DRUGS (3)
  1. KEPPRA [Suspect]
     Indication: EPILEPSY
     Dosage: 2250 MG /D PO
     Route: 048
     Dates: start: 20050201
  2. LAMOTRIGINE [Suspect]
     Indication: EPILEPSY
     Dosage: 150 MG /D PO
     Route: 048
     Dates: start: 20050201
  3. FRISIUM [Suspect]
     Indication: EPILEPSY
     Dosage: 5 MG /D PO
     Route: 048
     Dates: start: 20050201

REACTIONS (2)
  - DRUG EXPOSURE DURING PREGNANCY [None]
  - UNINTENDED PREGNANCY [None]
